FAERS Safety Report 8764272 (Version 2)
Quarter: 2012Q4

REPORT INFORMATION
  Report Type: 
  Country: GB (occurrence: GB)
  Receive Date: 20120831
  Receipt Date: 20120831
  Transmission Date: 20130627
  Serious: Yes (Life-Threatening, Hospitalization, Other)
  Sender: FDA-Public Use
  Company Number: GB-VERTEX PHARMACEUTICAL INC.-000000000000001372

PATIENT
  Age: 58 Year
  Sex: Male

DRUGS (4)
  1. VX-950 [Suspect]
     Indication: HEPATITIS C
     Dosage: 750 mg, tid
     Route: 048
     Dates: start: 20120529, end: 20120730
  2. PEG INTERFERON [Suspect]
     Indication: HEPATITIS C
     Dosage: 180 mg, weekly
     Route: 030
     Dates: start: 20120501, end: 20120730
  3. RIBAVIRIN [Suspect]
     Indication: HEPATITIS C
     Dosage: 200 mg, tid
     Route: 048
     Dates: start: 20120501, end: 20120730
  4. PROPRANOLOL [Concomitant]
     Indication: PRODUCT USED FOR UNKNOWN INDICATION
     Dosage: Dosage Form: Unspecified
     Route: 048

REACTIONS (3)
  - Escherichia sepsis [Recovered/Resolved]
  - Rectal fissure [Unknown]
  - Rectal haemorrhage [Unknown]
